FAERS Safety Report 4706438-7 (Version None)
Quarter: 2005Q2

REPORT INFORMATION
  Report Type: 
  Country: None (occurrence: None)
  Receive Date: 20050629
  Receipt Date: 20050620
  Transmission Date: 20051028
  Serious: Yes (Hospitalization, Other)
  Sender: FDA-Public Use
  Company Number: 2005BI001510

PATIENT
  Age: 64 Year
  Sex: Female
  Weight: 55.7924 kg

DRUGS (4)
  1. AVONEX [Suspect]
     Indication: MULTIPLE SCLEROSIS
     Dosage: 30 UG; QW; IM
     Route: 030
     Dates: start: 19960101, end: 20030101
  2. AVONEX [Suspect]
     Indication: MULTIPLE SCLEROSIS
     Dosage: 30 UG QW; IM
     Route: 030
     Dates: start: 20030101, end: 20041001
  3. AVONEX [Suspect]
     Indication: MULTIPLE SCLEROSIS
     Dosage: 15 UG QW; IM
     Route: 030
     Dates: start: 20050401
  4. LOTREL [Concomitant]

REACTIONS (4)
  - BREAST CANCER STAGE II [None]
  - INSOMNIA [None]
  - MUSCLE SPASMS [None]
  - PROGESTERONE RECEPTOR ASSAY POSITIVE [None]
